FAERS Safety Report 4380747-6 (Version None)
Quarter: 2004Q2

REPORT INFORMATION
  Report Type: 
  Country: None (occurrence: None)
  Receive Date: 20040614
  Receipt Date: 20040602
  Transmission Date: 20050107
  Serious: Yes (Other)
  Sender: FDA-Public Use
  Company Number: 163-20785-04050164

PATIENT
  Age: 24 Year
  Sex: Male

DRUGS (1)
  1. THALOMID [Suspect]
     Dosage: 200 MG, DAILY, ORAL
     Route: 048
     Dates: start: 20040504, end: 20040501

REACTIONS (6)
  - DISCOMFORT [None]
  - INFECTION [None]
  - MEDICAL DEVICE COMPLICATION [None]
  - MEDICATION ERROR [None]
  - MIGRATION OF IMPLANT [None]
  - PAIN [None]
